FAERS Safety Report 19634197 (Version 1)
Quarter: 2021Q3

REPORT INFORMATION
  Report Type: Spontaneous
  Country: US (occurrence: US)
  Receive Date: 20210729
  Receipt Date: 20210729
  Transmission Date: 20211014
  Serious: No
  Sender: FDA-Public Use
  Company Number: None

PATIENT
  Age: 34 Year
  Sex: Female

DRUGS (1)
  1. HYDROXYPROGEST SDV 250MG/ML [Suspect]
     Active Substance: HYDROXYPROGESTERONE CAPROATE
     Dosage: ?          OTHER DOSE:VIAL;OTHER FREQUENCY:OTHER;?
     Route: 030

REACTIONS (1)
  - Hypersensitivity [None]

NARRATIVE: CASE EVENT DATE: 20210729
